FAERS Safety Report 11918275 (Version 4)
Quarter: 2017Q2

REPORT INFORMATION
  Report Type: Report from Study
  Country: CA (occurrence: CA)
  Receive Date: 20160115
  Receipt Date: 20170620
  Transmission Date: 20170829
  Serious: Yes (Life-Threatening, Hospitalization)
  Sender: FDA-Public Use
  Company Number: CA-ROCHE-ITM201506IM017319

PATIENT
  Age: 86 Year
  Sex: Female
  Weight: 68 kg

DRUGS (10)
  1. ESBRIET [Suspect]
     Active Substance: PIRFENIDONE
     Indication: IDIOPATHIC PULMONARY FIBROSIS
     Route: 048
     Dates: start: 20150218
  2. ESBRIET [Suspect]
     Active Substance: PIRFENIDONE
     Route: 048
     Dates: start: 20150501
  3. ESBRIET [Suspect]
     Active Substance: PIRFENIDONE
     Route: 048
     Dates: start: 201605
  4. APO-HYDRO [Concomitant]
     Active Substance: HYDROCHLOROTHIAZIDE
  5. METAMUCIL [Concomitant]
     Active Substance: PLANTAGO SEED
  6. ESBRIET [Suspect]
     Active Substance: PIRFENIDONE
     Route: 048
     Dates: start: 20150225
  7. ESBRIET [Suspect]
     Active Substance: PIRFENIDONE
     Route: 048
     Dates: start: 20150304
  8. AVAPRO [Concomitant]
     Active Substance: IRBESARTAN
  9. MOTILIUM [Concomitant]
     Active Substance: DOMPERIDONE
  10. PANTOLOC [Concomitant]
     Active Substance: PANTOPRAZOLE SODIUM

REACTIONS (5)
  - Sunburn [Recovering/Resolving]
  - Myocardial infarction [Unknown]
  - Photosensitivity reaction [Unknown]
  - Carbon monoxide diffusing capacity decreased [Unknown]
  - Lip blister [Recovering/Resolving]

NARRATIVE: CASE EVENT DATE: 201505
